FAERS Safety Report 7546135-6 (Version None)
Quarter: 2011Q2

REPORT INFORMATION
  Report Type: 
  Country: None (occurrence: None)
  Receive Date: 20110614
  Receipt Date: 20030917
  Transmission Date: 20111010
  Serious: Yes (Hospitalization, Other)
  Sender: FDA-Public Use
  Company Number: PHFR2003GB03094

PATIENT
  Sex: Male

DRUGS (2)
  1. CLOZAPINE [Suspect]
     Route: 048
     Dates: start: 20030807
  2. CLOZAPINE [Suspect]
     Indication: SCHIZOPHRENIA
     Dosage: 150 MG, DAILY
     Route: 048
     Dates: start: 20010922, end: 20030804

REACTIONS (6)
  - HEAT EXHAUSTION [None]
  - CONVULSION [None]
  - COAGULATION TIME PROLONGED [None]
  - DEHYDRATION [None]
  - HAEMORRHAGE [None]
  - ACCIDENT [None]
